FAERS Safety Report 17450508 (Version 1)
Quarter: 2020Q1

REPORT INFORMATION
  Report Type: Spontaneous
  Country: US (occurrence: US)
  Receive Date: 20200224
  Receipt Date: 20200224
  Transmission Date: 20200409
  Serious: No
  Sender: FDA-Public Use
  Company Number: US-BRISTOL-MYERS SQUIBB COMPANY-BMS-2020-014770

PATIENT
  Sex: Female
  Weight: 52.9 kg

DRUGS (1)
  1. ORENCIA [Suspect]
     Active Substance: ABATACEPT
     Indication: RHEUMATOID ARTHRITIS
     Dosage: UNK, Q4WK
     Route: 050
     Dates: start: 20200214

REACTIONS (3)
  - Poor venous access [Unknown]
  - Incorrect dose administered [Unknown]
  - Injection site extravasation [Unknown]
